FAERS Safety Report 7263423-1 (Version None)
Quarter: 2011Q1

REPORT INFORMATION
  Report Type: 
  Country: None (occurrence: None)
  Receive Date: 20110130
  Receipt Date: 20101029
  Transmission Date: 20110831
  Serious: No
  Sender: FDA-Public Use
  Company Number: US-ABBOTT-10P-163-0683911-00

PATIENT
  Sex: Female
  Weight: 90.8 kg

DRUGS (5)
  1. VICODIN [Concomitant]
     Indication: PAIN
  2. ALBUTEROL [Concomitant]
     Indication: ASTHMA
  3. HUMIRA [Suspect]
     Indication: ANKYLOSING SPONDYLITIS
     Dates: start: 20100801
  4. ADVAIR [Concomitant]
     Indication: ASTHMA
  5. MORPHINE [Concomitant]
     Indication: PAIN

REACTIONS (3)
  - RASH [None]
  - PRURITUS [None]
  - RASH PAPULAR [None]
